FAERS Safety Report 11770721 (Version 2)
Quarter: 2015Q4

REPORT INFORMATION
  Report Type: Report from Study
  Country: DE (occurrence: DE)
  Receive Date: 20151123
  Receipt Date: 20151210
  Transmission Date: 20160304
  Serious: Yes (Other)
  Sender: FDA-Public Use
  Company Number: DE-ROCHE-1662211

PATIENT
  Age: 68 Year
  Sex: Male

DRUGS (8)
  1. DEXAMETHASON [Concomitant]
     Active Substance: DEXAMETHASONE
     Indication: METASTASES TO CENTRAL NERVOUS SYSTEM
     Route: 048
  2. OMEPRAZOL [Concomitant]
     Active Substance: OMEPRAZOLE
     Route: 048
  3. ONDANSETRON [Concomitant]
     Active Substance: ONDANSETRON
     Indication: NAUSEA
     Route: 048
  4. GODAMED [Concomitant]
     Active Substance: ASPIRIN
     Route: 048
  5. VERGENTAN [Concomitant]
     Indication: VERTIGO
     Route: 048
  6. COBIMETINIB [Suspect]
     Active Substance: COBIMETINIB
     Indication: MALIGNANT MELANOMA
     Route: 048
     Dates: start: 20150918, end: 20151126
  7. XGEVA [Concomitant]
     Active Substance: DENOSUMAB
     Indication: METASTASES TO BONE
     Route: 058
     Dates: start: 20150917
  8. VEMURAFENIB [Suspect]
     Active Substance: VEMURAFENIB
     Indication: MALIGNANT MELANOMA
     Route: 048
     Dates: start: 201507, end: 20151126

REACTIONS (1)
  - Squamous cell carcinoma of the oral cavity [Recovered/Resolved]

NARRATIVE: CASE EVENT DATE: 201510
